FAERS Safety Report 23529456 (Version 1)
Quarter: 2024Q1

REPORT INFORMATION
  Report Type: Report from Study
  Country: IT (occurrence: IT)
  Receive Date: 20240216
  Receipt Date: 20240216
  Transmission Date: 20240410
  Serious: Yes (Hospitalization)
  Sender: FDA-Public Use
  Company Number: None

PATIENT
  Age: 76 Year
  Sex: Female

DRUGS (2)
  1. PACLITAXEL [Suspect]
     Active Substance: PACLITAXEL
     Indication: Product used for unknown indication
     Route: 065
     Dates: start: 20231002, end: 20231002
  2. GEMCITABINE [Suspect]
     Active Substance: GEMCITABINE
     Indication: Product used for unknown indication
     Route: 065
     Dates: start: 20231002, end: 20231002

REACTIONS (2)
  - Hyperpyrexia [Recovering/Resolving]
  - Confusional state [Recovering/Resolving]

NARRATIVE: CASE EVENT DATE: 20231018
